FAERS Safety Report 15285407 (Version 1)
Quarter: 2018Q4

REPORT INFORMATION
  Report Type: Spontaneous
  Country: FR (occurrence: FR)
  Receive Date: 20180816
  Receipt Date: 20180816
  Transmission Date: 20190204
  Serious: Yes (Hospitalization)
  Sender: FDA-Public Use
  Company Number: FR-CANTON LABORATORIES, LLC-2053817

PATIENT
  Age: 31 Year
  Sex: Female

DRUGS (9)
  1. VALIUM [Suspect]
     Active Substance: DIAZEPAM
     Route: 065
  2. ACUPAN [Suspect]
     Active Substance: NEFOPAM HYDROCHLORIDE
     Route: 065
  3. RELPAX [Suspect]
     Active Substance: ELETRIPTAN HYDROBROMIDE
     Route: 065
  4. SALBUTAMOL [Suspect]
     Active Substance: ALBUTEROL
     Route: 065
  5. NAPROSYN [Suspect]
     Active Substance: NAPROXEN
     Indication: PRODUCT USED FOR UNKNOWN INDICATION
     Route: 065
  6. LAMALINE (CAFFEINE\PARACETAMOL\ATROPA BELLADONNA EXTRACT\PAPAVER SOMNIFERUM TINCTURE) [Suspect]
     Active Substance: ACETAMINOPHEN\BELLADONNA LEAF\CAFFEINE\OPIUM
     Route: 065
  7. AUGMENTIN [Suspect]
     Active Substance: AMOXICILLIN\CLAVULANATE POTASSIUM
     Route: 065
  8. LAROXYL [Suspect]
     Active Substance: AMITRIPTYLINE HYDROCHLORIDE
     Route: 065
  9. XEROQUEL LP [Suspect]
     Active Substance: QUETIAPINE FUMARATE
     Route: 065

REACTIONS (2)
  - Cholestasis [Recovering/Resolving]
  - Drug dependence [Not Recovered/Not Resolved]
